FAERS Safety Report 4449032-8 (Version None)
Quarter: 2004Q3

REPORT INFORMATION
  Report Type: 
  Country: None (occurrence: None)
  Receive Date: 20040910
  Receipt Date: 20040831
  Transmission Date: 20050211
  Serious: Yes (Hospitalization)
  Sender: FDA-Public Use
  Company Number: 2004SE03048

PATIENT
  Age: 70 Year
  Sex: Male
  Weight: 69 kg

DRUGS (2)
  1. TCV-116 (PREMEDICATION) [Suspect]
     Indication: ESSENTIAL HYPERTENSION
     Dosage: 8 MG QD PO
     Route: 048
     Dates: start: 20030617, end: 20030806
  2. TCV-116 (MEDICATION) [Suspect]
     Indication: ESSENTIAL HYPERTENSION
     Dosage: 16 MG QD PO
     Route: 048
     Dates: start: 20030807, end: 20040425

REACTIONS (2)
  - BLOOD PRESSURE INCREASED [None]
  - CEREBELLAR INFARCTION [None]
